FAERS Safety Report 6122741-0 (Version None)
Quarter: 2009Q1

REPORT INFORMATION
  Report Type: 
  Country: None (occurrence: None)
  Receive Date: 20090318
  Receipt Date: 20090122
  Transmission Date: 20090719
  Serious: No
  Sender: FDA-Public Use
  Company Number: US-AMGEN-KDL329655

PATIENT
  Sex: Male

DRUGS (6)
  1. NEULASTA [Suspect]
     Indication: CHEMOTHERAPY
     Dates: start: 20090120
  2. ADRIAMYCIN RDF [Concomitant]
  3. CYTOXAN [Concomitant]
  4. ONCOVIN [Concomitant]
  5. RITUXAN [Concomitant]
  6. PREDNISONE [Concomitant]

REACTIONS (3)
  - PAIN IN JAW [None]
  - PYREXIA [None]
  - SENSORY DISTURBANCE [None]
